FAERS Safety Report 16421725 (Version 1)
Quarter: 2019Q2

REPORT INFORMATION
  Report Type: Spontaneous
  Country: US (occurrence: US)
  Receive Date: 20190506
  Receipt Date: 20190506
  Transmission Date: 20190711
  Serious: Yes (Hospitalization)
  Sender: FDA-Public Use
  Company Number: None

PATIENT
  Age: 44 Year
  Sex: Male
  Weight: 75.66 kg

DRUGS (2)
  1. VANCOMYCIN [Suspect]
     Active Substance: VANCOMYCIN
     Indication: VASCULITIS
     Route: 042
     Dates: start: 20190406, end: 20190411
  2. VANCOMYCIN [Suspect]
     Active Substance: VANCOMYCIN
     Indication: PERICARDIAL EFFUSION
     Route: 042
     Dates: start: 20190406, end: 20190411

REACTIONS (2)
  - Toxicity to various agents [None]
  - Renal tubular necrosis [None]

NARRATIVE: CASE EVENT DATE: 20190423
